FAERS Safety Report 20594300 (Version 1)
Quarter: 2022Q1

REPORT INFORMATION
  Report Type: Spontaneous
  Country: US (occurrence: None)
  Receive Date: 20220315
  Receipt Date: 20220315
  Transmission Date: 20220423
  Serious: Yes (Hospitalization)
  Sender: FDA-Public Use
  Company Number: US-ROCHE-3040895

PATIENT
  Sex: Female
  Weight: 59.020 kg

DRUGS (1)
  1. OCREVUS [Suspect]
     Active Substance: OCRELIZUMAB
     Indication: Relapsing-remitting multiple sclerosis
     Route: 042

REACTIONS (12)
  - Fungal infection [Not Recovered/Not Resolved]
  - Pneumonia [Not Recovered/Not Resolved]
  - Gastrooesophageal reflux disease [Not Recovered/Not Resolved]
  - Pneumonia fungal [Not Recovered/Not Resolved]
  - Confusional state [Not Recovered/Not Resolved]
  - Asthenia [Not Recovered/Not Resolved]
  - Pyrexia [Unknown]
  - Fatigue [Unknown]
  - Slow speech [Unknown]
  - Urinary tract infection [Not Recovered/Not Resolved]
  - COVID-19 [Not Recovered/Not Resolved]
  - Weight decreased [Not Recovered/Not Resolved]

NARRATIVE: CASE EVENT DATE: 20220101
